FAERS Safety Report 14182347 (Version 1)
Quarter: 2017Q4

REPORT INFORMATION
  Report Type: Spontaneous
  Country: IT (occurrence: IT)
  Receive Date: 20171113
  Receipt Date: 20171113
  Transmission Date: 20180321
  Serious: Yes (Hospitalization, Other)
  Sender: FDA-Public Use
  Company Number: IT-VISTAPHARM, INC.-VER201711-001046

PATIENT
  Age: 41 Year
  Sex: Female

DRUGS (1)
  1. ALBUTEROL. [Suspect]
     Active Substance: ALBUTEROL
     Indication: ASTHMA

REACTIONS (4)
  - Drug abuse [Unknown]
  - Acute myocardial infarction [Recovered/Resolved]
  - Arterial spasm [Recovered/Resolved]
  - Arterial intramural haematoma [Recovered/Resolved]
